FAERS Safety Report 25593195 (Version 1)
Quarter: 2025Q3

REPORT INFORMATION
  Report Type: Spontaneous
  Country: JP (occurrence: JP)
  Receive Date: 20250722
  Receipt Date: 20250722
  Transmission Date: 20251020
  Serious: Yes (Death, Hospitalization)
  Sender: MERCK SHARP & DOHME LLC
  Company Number: JP-009507513-2310257

PATIENT
  Age: 71 Year
  Sex: Female

DRUGS (1)
  1. PEMBROLIZUMAB [Suspect]
     Active Substance: PEMBROLIZUMAB
     Indication: Lung adenocarcinoma

REACTIONS (5)
  - General physical health deterioration [Fatal]
  - Gastritis haemorrhagic [Recovered/Resolved]
  - Interstitial lung disease [Fatal]
  - Immune-mediated gastritis [Fatal]
  - Immune-mediated enterocolitis [Fatal]
